FAERS Safety Report 7312348-1 (Version None)
Quarter: 2011Q1

REPORT INFORMATION
  Report Type: 
  Country: None (occurrence: None)
  Receive Date: 20110224
  Receipt Date: 20110215
  Transmission Date: 20110831
  Serious: Yes (Hospitalization, Other)
  Sender: FDA-Public Use
  Company Number: US-ELI_LILLY_AND_COMPANY-US201007005406

PATIENT
  Sex: Female

DRUGS (7)
  1. ALLEGRA [Concomitant]
     Dosage: UNK, UNKNOWN
     Route: 065
  2. PROTONIX [Concomitant]
     Dosage: UNK, UNKNOWN
     Route: 065
  3. NASONEX [Concomitant]
     Dosage: UNK, UNKNOWN
     Route: 065
  4. FORTEO [Suspect]
     Indication: OSTEOPOROSIS
     Dosage: 20 UG, DAILY (1/D)
     Route: 065
     Dates: start: 20100701
  5. FORTEO [Suspect]
     Dosage: 20 UG, DAILY (1/D)
  6. NORVASC [Concomitant]
     Dosage: UNK, UNKNOWN
     Route: 065
  7. VALIUM [Concomitant]
     Dosage: UNK, UNKNOWN
     Route: 065

REACTIONS (7)
  - NAUSEA [None]
  - HYPOPHAGIA [None]
  - SEASONAL ALLERGY [None]
  - FRACTURE NONUNION [None]
  - HYPOTENSION [None]
  - MALAISE [None]
  - HEADACHE [None]
